FAERS Safety Report 23681250 (Version 1)
Quarter: 2024Q1

REPORT INFORMATION
  Report Type: Spontaneous
  Country: FR (occurrence: FR)
  Receive Date: 20240328
  Receipt Date: 20240328
  Transmission Date: 20240410
  Serious: Yes (Hospitalization)
  Sender: FDA-Public Use
  Company Number: None

PATIENT
  Age: 83 Year
  Sex: Male
  Weight: 74 kg

DRUGS (1)
  1. ARANESP [Suspect]
     Active Substance: DARBEPOETIN ALFA
     Indication: Myelodysplastic syndrome
     Dosage: 300 MICROGRAM, QWK
     Route: 058
     Dates: start: 20231127, end: 20240130

REACTIONS (3)
  - Cerebral venous thrombosis [Recovering/Resolving]
  - Papilloedema [Recovering/Resolving]
  - Atheroembolism [Unknown]

NARRATIVE: CASE EVENT DATE: 20240125
